FAERS Safety Report 4441316-2 (Version None)
Quarter: 2004Q3

REPORT INFORMATION
  Report Type: 
  Country: None (occurrence: None)
  Receive Date: 20040728
  Receipt Date: 20040429
  Transmission Date: 20050211
  Serious: No
  Sender: FDA-Public Use
  Company Number: USA040466370

PATIENT
  Age: 14 Year
  Sex: Male
  Weight: 64 kg

DRUGS (1)
  1. STRATTERA [Suspect]
     Indication: ATTENTION DEFICIT/HYPERACTIVITY DISORDER
     Dosage: 40 MG/ 2 DAY
     Dates: start: 20031001

REACTIONS (3)
  - ABNORMAL BEHAVIOUR [None]
  - DEPRESSED MOOD [None]
  - FEELING ABNORMAL [None]
